FAERS Safety Report 5341768-X (Version None)
Quarter: 2007Q2

REPORT INFORMATION
  Report Type: 
  Country: None (occurrence: None)
  Receive Date: 20070529
  Receipt Date: 20070529
  Transmission Date: 20071010
  Serious: No
  Sender: FDA-Public Use
  Company Number: None

PATIENT
  Age: 73 Year
  Sex: Female
  Weight: 63.05 kg

DRUGS (1)
  1. CLEOCIN [Suspect]
     Indication: TOOTH INFECTION
     Dosage: 1  3 DAILY
     Dates: start: 20070521, end: 20070521

REACTIONS (1)
  - PRURITUS [None]
